FAERS Safety Report 18530594 (Version 3)
Quarter: 2021Q1

REPORT INFORMATION
  Report Type: Report from Study
  Country: US (occurrence: US)
  Receive Date: 20201121
  Receipt Date: 20210302
  Transmission Date: 20210419
  Serious: No
  Sender: FDA-Public Use
  Company Number: NVSC2020US303790

PATIENT
  Sex: Female

DRUGS (1)
  1. KESIMPTA [Suspect]
     Active Substance: OFATUMUMAB
     Indication: MULTIPLE SCLEROSIS
     Dosage: UNK (20 MG/0.4 ML PEN)
     Route: 058

REACTIONS (4)
  - Arthralgia [Unknown]
  - Myalgia [Unknown]
  - Chills [Unknown]
  - Incorrect dose administered [Unknown]
